FAERS Safety Report 7819560-3 (Version None)
Quarter: 2011Q4

REPORT INFORMATION
  Report Type: 
  Country: None (occurrence: None)
  Receive Date: 20111013
  Receipt Date: 20110809
  Transmission Date: 20120403
  Serious: No
  Sender: FDA-Public Use
  Company Number: USA/USA/11/0020654

PATIENT
  Age: 62 Year
  Sex: Female

DRUGS (1)
  1. LEVOFLOXACIN [Suspect]
     Indication: BRONCHITIS
     Dosage: 500 MG, 1 IN 1 HR, ORAL
     Route: 048
     Dates: start: 20110727, end: 20110803

REACTIONS (6)
  - GAIT DISTURBANCE [None]
  - JOINT SWELLING [None]
  - MUSCLE TIGHTNESS [None]
  - ARTHRALGIA [None]
  - MOVEMENT DISORDER [None]
  - FEELING HOT [None]
